FAERS Safety Report 6327154-4 (Version None)
Quarter: 2009Q3

REPORT INFORMATION
  Report Type: 
  Country: None (occurrence: None)
  Receive Date: 20090825
  Receipt Date: 20090818
  Transmission Date: 20100115
  Serious: Yes (Disabling)
  Sender: FDA-Public Use
  Company Number: B0579376A

PATIENT
  Sex: Male
  Weight: 72 kg

DRUGS (10)
  1. FLUTICASONE PROPIONATE [Suspect]
     Dosage: 1SPR PER DAY
     Route: 045
     Dates: start: 20080101
  2. COMBIVIR [Suspect]
     Indication: HIV INFECTION
     Dosage: 2TAB PER DAY
     Route: 048
     Dates: end: 20090329
  3. TMC125 [Suspect]
     Indication: HIV INFECTION
     Dosage: 2TAB PER DAY
     Dates: start: 20080815, end: 20090329
  4. DARUNAVIR [Suspect]
     Indication: HIV INFECTION
     Dosage: 2TAB PER DAY
     Route: 048
     Dates: start: 20080815, end: 20090329
  5. RITONAVIR [Suspect]
     Indication: HIV INFECTION
     Route: 048
     Dates: start: 20080815, end: 20090329
  6. VIREAD [Suspect]
     Indication: HIV INFECTION
     Dosage: 300MG PER DAY
     Route: 048
     Dates: end: 20090329
  7. VALACYCLOVIR [Concomitant]
     Dosage: 500MG TWICE PER DAY
     Dates: start: 20080803
  8. HYDROCHLOROTHIAZIDE [Concomitant]
     Dosage: 25MG PER DAY
     Dates: start: 20080820
  9. SALMETEROL [Concomitant]
     Dates: start: 20081101
  10. TIOTROPIUM BROMIDE [Concomitant]
     Indication: ASTHMA
     Dosage: 18UG TWICE PER DAY
     Dates: start: 20081201

REACTIONS (3)
  - ARTHRALGIA [None]
  - DRUG INTERACTION [None]
  - OSTEONECROSIS [None]
